FAERS Safety Report 7125084-1 (Version None)
Quarter: 2010Q4

REPORT INFORMATION
  Report Type: 
  Country: None (occurrence: None)
  Receive Date: 20101129
  Receipt Date: 20101014
  Transmission Date: 20110411
  Serious: Yes (Hospitalization)
  Sender: FDA-Public Use
  Company Number: GB-AMGEN-GBRCT2010000337

PATIENT

DRUGS (7)
  1. PANITUMUMAB [Suspect]
     Indication: GASTROOESOPHAGEAL CANCER
     Dosage: UNK
     Dates: start: 20100920
  2. EPIRUBICIN [Suspect]
     Indication: CHEMOTHERAPY
     Dosage: UNK
     Dates: start: 20100920
  3. OXALIPLATIN [Suspect]
     Indication: CHEMOTHERAPY
     Dosage: UNK
     Dates: start: 20100920
  4. CAPECITABINE [Suspect]
     Indication: CHEMOTHERAPY
     Dosage: UNK
     Dates: start: 20101002
  5. RANITIDINE [Concomitant]
     Dosage: 150 MG, UNK
     Dates: start: 20100928
  6. LANSOPRAZOLE [Concomitant]
     Dosage: 30 MG, QD
     Dates: start: 20100928
  7. ZINERYT [Concomitant]
     Dosage: UNK UNK, BID
     Dates: start: 20100929

REACTIONS (1)
  - FEBRILE NEUTROPENIA [None]
